FAERS Safety Report 7692981-8 (Version None)
Quarter: 2011Q3

REPORT INFORMATION
  Report Type: 
  Country: None (occurrence: None)
  Receive Date: 20110819
  Receipt Date: 20110809
  Transmission Date: 20111222
  Serious: Yes (Other)
  Sender: FDA-Public Use
  Company Number: FR-JNJFOC-20110801624

PATIENT
  Age: 25 Year
  Sex: Male

DRUGS (12)
  1. ACETAMINOPHEN [Concomitant]
  2. ACUPAN [Concomitant]
  3. REMICADE [Suspect]
     Route: 042
     Dates: start: 20110323
  4. PREDNISONE [Concomitant]
     Dosage: 80 MG DAILY WITH DECREASING DOSE
  5. REMICADE [Suspect]
     Route: 042
     Dates: start: 20110413
  6. TRAMADOL HCL [Concomitant]
  7. CORTICOSTEROIDS [Concomitant]
     Dates: start: 20110101
  8. REMICADE [Suspect]
     Indication: PRODUCT USED FOR UNKNOWN INDICATION
     Route: 042
     Dates: start: 20110512, end: 20110601
  9. CACIT D3 [Concomitant]
     Dates: start: 20110101
  10. OMEPRAZOLE [Concomitant]
     Dates: start: 20110101
  11. METHOTREXATE [Concomitant]
     Dates: start: 20110211
  12. FOLIC ACID [Concomitant]

REACTIONS (1)
  - DEPERSONALISATION [None]
